FAERS Safety Report 7707154-X (Version None)
Quarter: 2011Q3

REPORT INFORMATION
  Report Type: 
  Country: None (occurrence: None)
  Receive Date: 20110824
  Receipt Date: 20110811
  Transmission Date: 20111222
  Serious: Yes (Hospitalization, Other)
  Sender: FDA-Public Use
  Company Number: JP-CELGENEUS-087-50794-11081876

PATIENT
  Sex: Male

DRUGS (13)
  1. VANCOMYCIN HCL [Concomitant]
     Dosage: 2 GRAM
     Route: 041
     Dates: start: 20110507, end: 20110602
  2. VIDAZA [Suspect]
     Indication: MYELODYSPLASTIC SYNDROME
     Dosage: 75 MILLIGRAM/SQ. METER
     Route: 041
     Dates: start: 20110425, end: 20110501
  3. PREDNISOLONE [Concomitant]
     Dosage: 10 MILLIGRAM
     Route: 048
     Dates: start: 20110603, end: 20110610
  4. MEROPENEM [Concomitant]
     Dosage: 3 GRAM
     Route: 041
     Dates: start: 20110505, end: 20110516
  5. RABEPRAZOLE SODIUM [Concomitant]
     Dosage: 10 MILLIGRAM
     Route: 048
     Dates: start: 20101106
  6. LEVOFLOXACIN [Concomitant]
     Dosage: 500 MILLIGRAM
     Route: 041
     Dates: start: 20110601, end: 20110602
  7. GENTACIN [Concomitant]
     Dosage: 120 MILLIGRAM
     Route: 041
     Dates: start: 20110518, end: 20110531
  8. ITRACONAZOLE [Concomitant]
     Dosage: 200 MILLIGRAM
     Route: 048
     Dates: start: 20110628
  9. FLUCONAZOLE [Concomitant]
     Dosage: 200 MILLIGRAM
     Route: 048
     Dates: start: 20110307, end: 20110627
  10. MAGMITT [Concomitant]
     Dosage: 990 MILLIGRAM
     Route: 048
     Dates: start: 20110405
  11. LEVOFLOXACIN [Concomitant]
     Dosage: 250 MILLIGRAM
     Route: 048
     Dates: start: 20110430, end: 20110502
  12. MAXIPIME [Concomitant]
     Dosage: 4 GRAM
     Route: 041
     Dates: start: 20110502, end: 20110504
  13. CIPROFLOXACIN HCL [Concomitant]
     Dosage: 600 MILLIGRAM
     Route: 041
     Dates: start: 20110517, end: 20110531

REACTIONS (5)
  - FEBRILE NEUTROPENIA [None]
  - INFECTION [None]
  - RENAL IMPAIRMENT [None]
  - BLOOD LACTATE DEHYDROGENASE INCREASED [None]
  - RASH [None]
